FAERS Safety Report 10008118 (Version 1)
Quarter: 2014Q1

REPORT INFORMATION
  Report Type: Spontaneous
  Country: US (occurrence: US)
  Receive Date: 20140313
  Receipt Date: 20140313
  Transmission Date: 20141002
  Serious: No
  Sender: FDA-Public Use
  Company Number: US-TEVA-463049USA

PATIENT
  Sex: Female

DRUGS (2)
  1. QUARTETTE [Suspect]
  2. IRON [Concomitant]

REACTIONS (1)
  - Drug screen positive [Unknown]
